FAERS Safety Report 8738544 (Version 2)
Quarter: 2012Q4

REPORT INFORMATION
  Report Type: 
  Country: JP (occurrence: JP)
  Receive Date: 20120823
  Receipt Date: 20121112
  Transmission Date: 20130627
  Serious: Yes (Hospitalization)
  Sender: FDA-Public Use
  Company Number: PHHY2012JP072185

PATIENT
  Age: 83 Year
  Sex: Female

DRUGS (5)
  1. RIVASTIGMINE [Suspect]
     Indication: DEMENTIA ALZHEIMER^S TYPE
     Dosage: 4.5 mg, daily
     Route: 062
     Dates: start: 20120802, end: 20120830
  2. RIVASTIGMINE [Suspect]
     Dosage: 9 mg, Daily
     Route: 062
     Dates: start: 20120831, end: 20120928
  3. ELDECALCITOL [Concomitant]
     Dates: start: 20120410, end: 20120816
  4. EPINASTINE [Concomitant]
     Dates: start: 20120801, end: 20120815
  5. BONOTEO [Concomitant]
     Dates: start: 20120224, end: 201208

REACTIONS (3)
  - Hepatic failure [Unknown]
  - Hyperammonaemia [Recovering/Resolving]
  - Altered state of consciousness [Recovering/Resolving]
